FAERS Safety Report 4703766-6 (Version None)
Quarter: 2005Q2

REPORT INFORMATION
  Report Type: 
  Country: None (occurrence: None)
  Receive Date: 20050628
  Receipt Date: 20050620
  Transmission Date: 20051028
  Serious: Yes (Hospitalization)
  Sender: FDA-Public Use
  Company Number: STA-AE-05-021

PATIENT
  Age: 20 Year
  Sex: Female

DRUGS (2)
  1. PROPYLTHIOURACIL [Suspect]
     Dosage: 150 MG 3X DAILY
  2. ATENOLOL [Concomitant]

REACTIONS (12)
  - ABDOMINAL PAIN [None]
  - ACHOLIA [None]
  - CHOLURIA [None]
  - HEPATIC ENCEPHALOPATHY [None]
  - HEPATIC FAILURE [None]
  - HEPATITIS FULMINANT [None]
  - INTERNATIONAL NORMALISED RATIO INCREASED [None]
  - NAUSEA [None]
  - PYREXIA [None]
  - STUPOR [None]
  - TACHYCARDIA [None]
  - VOMITING [None]
